FAERS Safety Report 9256790 (Version 3)
Quarter: 2013Q2

REPORT INFORMATION
  Report Type: Spontaneous
  Country: IR (occurrence: IR)
  Receive Date: 20130426
  Receipt Date: 20130618
  Transmission Date: 20140414
  Serious: Yes (Death, Life-Threatening, Hospitalization, Disabling, Other)
  Sender: FDA-Public Use
  Company Number: IR-MERCK-1304IRN015112

PATIENT
  Age: 21 Year
  Sex: Male
  Weight: 80 kg

DRUGS (4)
  1. PEG-INTRON [Suspect]
     Indication: HEPATITIS C
     Dosage: 100 MICROGRAM, QW
     Route: 058
     Dates: start: 20110901, end: 20120115
  2. REBETOL [Suspect]
     Indication: HEPATITIS C
     Dosage: 1000 MG, QD
     Route: 048
     Dates: start: 20110901, end: 20120115
  3. INSULIN [Concomitant]
     Indication: DIABETES MELLITUS
     Dosage: HIGH DOSE
     Route: 058
  4. AMPHOTERICIN B [Concomitant]
     Indication: ZYGOMYCOSIS
     Route: 042

REACTIONS (4)
  - Zygomycosis [Fatal]
  - Peroneal nerve palsy [Not Recovered/Not Resolved]
  - Altered state of consciousness [Not Recovered/Not Resolved]
  - Rhinorrhoea [Unknown]
